FAERS Safety Report 20584423 (Version 1)
Quarter: 2022Q1

REPORT INFORMATION
  Report Type: Spontaneous
  Country: TW (occurrence: TW)
  Receive Date: 20220311
  Receipt Date: 20220311
  Transmission Date: 20220424
  Serious: Yes (Death)
  Sender: FDA-Public Use
  Company Number: TW-002147023-NVSC2022TW053694

PATIENT

DRUGS (1)
  1. RUXOLITINIB [Suspect]
     Active Substance: RUXOLITINIB
     Indication: Myelofibrosis
     Route: 048

REACTIONS (3)
  - Haemorrhage [Fatal]
  - Cardiac failure congestive [Fatal]
  - End stage renal disease [Fatal]
